FAERS Safety Report 7609241-3 (Version None)
Quarter: 2011Q3

REPORT INFORMATION
  Report Type: 
  Country: None (occurrence: None)
  Receive Date: 20110714
  Receipt Date: 20110707
  Transmission Date: 20111222
  Serious: Yes (Disabling)
  Sender: FDA-Public Use
  Company Number: US-ABBOTT-11P-163-0731942-00

PATIENT
  Sex: Female
  Weight: 74.5 kg

DRUGS (14)
  1. HUMIRA [Suspect]
     Indication: RHEUMATOID ARTHRITIS
     Dates: start: 20100503
  2. METHOCARBAMOL [Concomitant]
     Indication: PRODUCT USED FOR UNKNOWN INDICATION
     Dosage: IN THE AM AND PM
  3. FUROSEMIDE [Concomitant]
     Indication: FLUID RETENTION
  4. OXYCODONE HCL [Concomitant]
     Indication: ARTHRALGIA
     Dosage: 2 TABS EVERY 6 HOURS
  5. METHOTREXATE [Concomitant]
     Indication: RHEUMATOID ARTHRITIS
     Dosage: 6 TABS WEEKLY
  6. NITROFURANTON MICOR [Concomitant]
     Indication: PRODUCT USED FOR UNKNOWN INDICATION
  7. PROMETHAZINE [Concomitant]
     Indication: NAUSEA
     Dosage: EVERY 4-6 HOURS
  8. LYRICA [Concomitant]
     Indication: PRODUCT USED FOR UNKNOWN INDICATION
     Dosage: TWO TABLETS 3 TIMES A DAY
  9. TYLENOL W/ CODEINE NO. 4 [Concomitant]
     Indication: RHEUMATOID ARTHRITIS
     Dosage: EVERY 4-6 HOURS AS NEEDED
  10. PREDNISONE [Concomitant]
     Indication: RHEUMATOID ARTHRITIS
  11. PREMARIN [Concomitant]
     Indication: HORMONE REPLACEMENT THERAPY
  12. PROMETHAZINE [Concomitant]
     Indication: VOMITING
  13. TYLENOL W/ CODEINE NO. 4 [Concomitant]
     Indication: FIBROMYALGIA
  14. DIAZEPAM [Concomitant]
     Indication: PRODUCT USED FOR UNKNOWN INDICATION

REACTIONS (5)
  - ARTHRALGIA [None]
  - BLISTER [None]
  - PRURITUS [None]
  - BEDRIDDEN [None]
  - JOINT STIFFNESS [None]
